FAERS Safety Report 18407911 (Version 1)
Quarter: 2020Q4

REPORT INFORMATION
  Report Type: Spontaneous
  Country: US (occurrence: US)
  Receive Date: 20201021
  Receipt Date: 20201021
  Transmission Date: 20210114
  Serious: No
  Sender: FDA-Public Use
  Company Number: US-ELI_LILLY_AND_COMPANY-US202010007363

PATIENT
  Age: 76 Year
  Sex: Female

DRUGS (1)
  1. BASAGLAR [Suspect]
     Active Substance: INSULIN GLARGINE
     Indication: DIABETES MELLITUS
     Dosage: 45 U, UNKNOWN
     Route: 058

REACTIONS (3)
  - Ligament sprain [Unknown]
  - Wrong product administered [Unknown]
  - Mental disorder [Unknown]

NARRATIVE: CASE EVENT DATE: 20201015
